FAERS Safety Report 22032201 (Version 1)
Quarter: 2023Q1

REPORT INFORMATION
  Report Type: Spontaneous
  Country: US (occurrence: US)
  Receive Date: 20230224
  Receipt Date: 20230224
  Transmission Date: 20230418
  Serious: Yes (Other)
  Sender: FDA-Public Use
  Company Number: US-AUROBINDO-AUR-APL-2023-008756

PATIENT
  Age: 3 Year
  Sex: Female

DRUGS (4)
  1. CYCLOPHOSPHAMIDE [Suspect]
     Active Substance: CYCLOPHOSPHAMIDE
     Indication: Stem cell transplant
     Dosage: 60 MILLIGRAM/KILOGRAM
     Route: 065
  2. ETOPOSIDE [Suspect]
     Active Substance: ETOPOSIDE
     Indication: Stem cell transplant
     Dosage: 1500 MILLIGRAM/SQ. METER
     Route: 065
  3. VANCOMYCIN [Concomitant]
     Active Substance: VANCOMYCIN
     Indication: Clostridium difficile infection
     Dosage: UNK
     Route: 048
  4. LETERMOVIR [Concomitant]
     Active Substance: LETERMOVIR
     Indication: Prophylaxis
     Dosage: 240 MILLIGRAM, ONCE A DAY
     Route: 065

REACTIONS (1)
  - Cytomegalovirus infection [Recovered/Resolved]
